FAERS Safety Report 13309393 (Version 1)
Quarter: 2017Q1

REPORT INFORMATION
  Report Type: Spontaneous
  Country: US (occurrence: US)
  Receive Date: 20170309
  Receipt Date: 20170309
  Transmission Date: 20170428
  Serious: No
  Sender: FDA-Public Use
  Company Number: US-ASTRAZENECA-2017SE22285

PATIENT
  Sex: Male
  Weight: 86.2 kg

DRUGS (1)
  1. SYMBICORT [Suspect]
     Active Substance: BUDESONIDE\FORMOTEROL FUMARATE DIHYDRATE
     Indication: ASTHMA
     Dosage: 80 4.5, 2 PUFFS TWICE A DAY
     Route: 055

REACTIONS (4)
  - Drug dose omission [Unknown]
  - Dysphonia [Unknown]
  - Dyspnoea [Unknown]
  - Intentional product misuse [Unknown]
